FAERS Safety Report 9547637 (Version 1)
Quarter: 2013Q3

REPORT INFORMATION
  Report Type: Report from Study
  Country: CO (occurrence: CO)
  Receive Date: 20130924
  Receipt Date: 20130924
  Transmission Date: 20140515
  Serious: Yes (Life-Threatening, Hospitalization)
  Sender: FDA-Public Use
  Company Number: CO-SANOFI-AVENTIS-2013SA092711

PATIENT
  Age: 71 Year
  Sex: Female

DRUGS (4)
  1. LANTUS [Suspect]
     Indication: DIABETES MELLITUS
     Dosage: DOSE:28 UNIT(S)
     Route: 058
     Dates: start: 201302
  2. ACETYLSALICYLIC ACID [Concomitant]
     Route: 048
  3. AMLODIPINE [Concomitant]
     Indication: HYPERTENSION
     Route: 048
  4. LEVOTHYROXINE [Concomitant]
     Indication: HYPOTHYROIDISM
     Route: 048

REACTIONS (3)
  - Acute myocardial infarction [Not Recovered/Not Resolved]
  - Hypotension [Not Recovered/Not Resolved]
  - Blood glucose increased [Not Recovered/Not Resolved]
